FAERS Safety Report 6112949-2 (Version None)
Quarter: 2009Q1

REPORT INFORMATION
  Report Type: 
  Country: None (occurrence: None)
  Receive Date: 20090312
  Receipt Date: 20090302
  Transmission Date: 20090719
  Serious: Yes (Hospitalization)
  Sender: FDA-Public Use
  Company Number: US-ELI_LILLY_AND_COMPANY-US200903000671

PATIENT
  Sex: Female

DRUGS (2)
  1. CYMBALTA [Suspect]
     Indication: ANXIETY
     Dosage: 60 MG, UNK
     Dates: start: 20070101, end: 20080401
  2. SYNTHROID [Concomitant]

REACTIONS (8)
  - ABDOMINAL DISTENSION [None]
  - BLISTER [None]
  - BURNING SENSATION [None]
  - DIZZINESS [None]
  - HYPERHIDROSIS [None]
  - KELOID SCAR [None]
  - NERVOUSNESS [None]
  - WEIGHT INCREASED [None]
